FAERS Safety Report 9022110 (Version 1)
Quarter: 2013Q1

REPORT INFORMATION
  Report Type: Spontaneous
  Country: DE (occurrence: DE)
  Receive Date: 20130118
  Receipt Date: 20130118
  Transmission Date: 20140127
  Serious: Yes (Other)
  Sender: FDA-Public Use
  Company Number: DE-AMGEN-DEUSP2013000004

PATIENT
  Age: 81 Year
  Sex: Female

DRUGS (1)
  1. PROLIA [Suspect]
     Indication: PRODUCT USED FOR UNKNOWN INDICATION

REACTIONS (12)
  - Vertigo [Unknown]
  - Gait disturbance [Unknown]
  - Constipation [Unknown]
  - Abdominal pain [Unknown]
  - Dizziness [Unknown]
  - Headache [Unknown]
  - Pain in extremity [Unknown]
  - Burning sensation [Unknown]
  - Erythema [Unknown]
  - Polyneuropathy [Unknown]
  - Inflammation [Unknown]
  - Vein disorder [Unknown]
